FAERS Safety Report 21320908 (Version 1)
Quarter: 2022Q3

REPORT INFORMATION
  Report Type: Spontaneous
  Country: US (occurrence: US)
  Receive Date: 20220912
  Receipt Date: 20220912
  Transmission Date: 20221027
  Serious: No
  Sender: FDA-Public Use
  Company Number: US-STRIDES ARCOLAB LIMITED-2021SP029493

PATIENT
  Age: 14 Year
  Sex: Male

DRUGS (11)
  1. CETIRIZINE [Suspect]
     Active Substance: CETIRIZINE HYDROCHLORIDE
     Indication: Angioedema
     Dosage: UNK
     Route: 065
  2. PREDNISOLONE [Concomitant]
     Active Substance: PREDNISOLONE
     Indication: Angioedema
     Dosage: UNK
     Route: 065
  3. HALOPERIDOL [Concomitant]
     Active Substance: HALOPERIDOL
     Indication: Acute psychosis
     Dosage: 2.5 MILLIGRAM PER DAY ON DAY 3 IN EMERGENCY DEPARTMENT
     Route: 030
  4. HALOPERIDOL [Concomitant]
     Active Substance: HALOPERIDOL
     Dosage: 5 MILLIGRAM PER DAY ON DAY 5 AND DAY 6 IN EMERGENCY DEPARTMENT
     Route: 030
  5. RISPERIDONE [Concomitant]
     Active Substance: RISPERIDONE
     Indication: Acute psychosis
     Dosage: 0.5 MILLIGRAM, BID ON DAY 2 AND DAY 4 IN EMERGENCY DEPARTMENT
     Route: 048
  6. RISPERIDONE [Concomitant]
     Active Substance: RISPERIDONE
     Dosage: 0.5 MILLIGRAM PER DAY ON DAY 5 AND DAY 6 IN EMERGENCY DEPARTMENT
     Route: 048
  7. RISPERIDONE [Concomitant]
     Active Substance: RISPERIDONE
     Dosage: 1 MILLIGRAM, BID
     Route: 048
  8. DIPHENHYDRAMINE [Concomitant]
     Active Substance: DIPHENHYDRAMINE
     Indication: Acute psychosis
     Dosage: 50 MILLIGRAM PER DAY
     Route: 030
  9. DIPHENHYDRAMINE [Concomitant]
     Active Substance: DIPHENHYDRAMINE
     Indication: Swollen tongue
     Dosage: UNK, ADDITIONAL DOSE
     Route: 030
  10. LORAZEPAM [Concomitant]
     Active Substance: LORAZEPAM
     Indication: Acute psychosis
     Dosage: 1 MILLIGRAM PER DAY, ON DAY 1 AND 2 IN EMERGENCY DEPARTMENT
     Route: 030
  11. LORAZEPAM [Concomitant]
     Active Substance: LORAZEPAM
     Dosage: 2 MILLIGRAM PER DAY, FROM DAY 3 TO DAY 6 IN EMERGENCY DEPARTMENT
     Route: 030

REACTIONS (1)
  - Off label use [Unknown]
